FAERS Safety Report 21084411 (Version 1)
Quarter: 2022Q3

REPORT INFORMATION
  Report Type: Spontaneous
  Country: US (occurrence: US)
  Receive Date: 20220714
  Receipt Date: 20220714
  Transmission Date: 20221027
  Serious: No
  Sender: FDA-Public Use
  Company Number: US-JAZZ-2022-US-017813

PATIENT
  Sex: Male

DRUGS (1)
  1. EPIDIOLEX [Suspect]
     Active Substance: CANNABIDIOL
     Indication: Idiopathic generalised epilepsy
     Dosage: 2.4 MILLILITER
     Route: 048
     Dates: start: 20220426

REACTIONS (3)
  - Liquid product physical issue [Unknown]
  - Off label use [Unknown]
  - Product taste abnormal [Unknown]
